FAERS Safety Report 5482083-3 (Version None)
Quarter: 2007Q4

REPORT INFORMATION
  Report Type: 
  Country: None (occurrence: None)
  Receive Date: 20071005
  Receipt Date: 20070920
  Transmission Date: 20080405
  Serious: Yes (Death)
  Sender: FDA-Public Use
  Company Number: S07-GRC-05261-01

PATIENT
  Age: 74 Year
  Sex: Female
  Weight: 65 kg

DRUGS (5)
  1. MEMANTINE HCL [Suspect]
     Indication: DEMENTIA
     Dosage: 20 MG QD PO
     Route: 048
     Dates: start: 20061107, end: 20061126
  2. LORAZEPAM [Concomitant]
  3. LEXOTANIL (BROMAZEPAM) [Concomitant]
  4. GALANTAMINE HYDROBROMIDE [Concomitant]
  5. GLYBURIDE [Concomitant]

REACTIONS (2)
  - OLIGURIA [None]
  - RENAL FAILURE ACUTE [None]
